FAERS Safety Report 7628550-5 (Version None)
Quarter: 2011Q3

REPORT INFORMATION
  Report Type: 
  Country: None (occurrence: None)
  Receive Date: 20110711
  Receipt Date: 20110608
  Transmission Date: 20111222
  Serious: Yes (Other)
  Sender: FDA-Public Use
  Company Number: 2011028752

PATIENT
  Sex: Female
  Weight: 68.9467 kg

DRUGS (1)
  1. HIZENTRA [Suspect]
     Indication: HYPOGLOBULINAEMIA
     Dosage: SUBCUTANEOUS
     Dates: start: 20110301

REACTIONS (2)
  - INFUSION SITE ABSCESS [None]
  - STAPHYLOCOCCAL ABSCESS [None]
